FAERS Safety Report 4875447-X (Version None)
Quarter: 2006Q1

REPORT INFORMATION
  Report Type: 
  Country: None (occurrence: None)
  Receive Date: 20060105
  Receipt Date: 20051222
  Transmission Date: 20060701
  Serious: Yes (Hospitalization, Other)
  Sender: FDA-Public Use
  Company Number: 2005BI011686

PATIENT
  Age: 58 Year
  Sex: Female

DRUGS (1)
  1. AVONEX [Suspect]
     Indication: MULTIPLE SCLEROSIS
     Dosage: 30 UG; QW; IM
     Route: 030
     Dates: start: 20031208, end: 20050301

REACTIONS (5)
  - ANAEMIA [None]
  - BLOOD COUNT ABNORMAL [None]
  - BONE MARROW DISORDER [None]
  - HAEMORRHAGE [None]
  - PNEUMONIA [None]
